FAERS Safety Report 6193081-9 (Version None)
Quarter: 2009Q2

REPORT INFORMATION
  Report Type: 
  Country: None (occurrence: None)
  Receive Date: 20090514
  Receipt Date: 20070714
  Transmission Date: 20091009
  Serious: Yes (Other)
  Sender: FDA-Public Use
  Company Number: 2007AP000801

PATIENT
  Age: 79 Year
  Sex: Male

DRUGS (6)
  1. MIDODRINE HYDROCHLORIDE TABLETS (2.5 MG) [Suspect]
     Indication: PARKINSON'S DISEASE
     Dosage: 7.5 MG; BID; PO; 10 MG; BID; PO
     Route: 048
     Dates: start: 20070701, end: 20070713
  2. MIDODRINE HYDROCHLORIDE TABLETS (2.5 MG) [Suspect]
     Indication: PARKINSON'S DISEASE
     Dosage: 7.5 MG; BID; PO; 10 MG; BID; PO
     Route: 048
     Dates: start: 20070714, end: 20070722
  3. SINEMET [Concomitant]
  4. ATENOLOL [Concomitant]
  5. MEMANTINE HCL [Concomitant]
  6. TROSPIUM [Concomitant]

REACTIONS (6)
  - DISORIENTATION [None]
  - DIZZINESS [None]
  - DRUG INEFFECTIVE [None]
  - FALL [None]
  - PRODUCT SUBSTITUTION ISSUE [None]
  - UNRESPONSIVE TO STIMULI [None]
